FAERS Safety Report 7199807-X (Version None)
Quarter: 2010Q4

REPORT INFORMATION
  Report Type: 
  Country: None (occurrence: None)
  Receive Date: 20101228
  Receipt Date: 20101208
  Transmission Date: 20110411
  Serious: No
  Sender: FDA-Public Use
  Company Number: US-PFIZER INC-2010170202

PATIENT
  Age: 56 Year
  Sex: Male
  Weight: 72.562 kg

DRUGS (4)
  1. ADVIL PM [Suspect]
     Indication: ANALGESIC THERAPY
     Dosage: 2 DF, AS NEEDED
     Route: 048
     Dates: start: 20100901, end: 20101001
  2. FISH OIL [Concomitant]
  3. MULTI-VITAMINS [Concomitant]
  4. ACIPHEX [Concomitant]

REACTIONS (1)
  - DRUG INEFFECTIVE [None]
